FAERS Safety Report 12187836 (Version 3)
Quarter: 2016Q2

REPORT INFORMATION
  Report Type: Spontaneous
  Country: DE (occurrence: DE)
  Receive Date: 20160317
  Receipt Date: 20160531
  Transmission Date: 20160815
  Serious: Yes (Hospitalization, Disabling)
  Sender: FDA-Public Use
  Company Number: DE-PFIZER INC-2016149649

PATIENT
  Age: 43 Year
  Sex: Female
  Weight: 82 kg

DRUGS (8)
  1. VENLAFAXIN [Concomitant]
     Active Substance: VENLAFAXINE HYDROCHLORIDE
     Indication: HYPOPITUITARISM
  2. METFORMIN [Concomitant]
     Active Substance: METFORMIN HYDROCHLORIDE
     Dosage: 2X500
  3. L-THYROXIN [Concomitant]
     Active Substance: LEVOTHYROXINE SODIUM
     Indication: HYPOPITUITARISM
     Dosage: 100 UNK, UNK
  4. VENLAFAXIN [Concomitant]
     Active Substance: VENLAFAXINE HYDROCHLORIDE
     Indication: DEPRESSION
     Dosage: 75 UNK, UNK
  5. GYNOKADIN [Concomitant]
     Active Substance: ESTRADIOL
  6. GENOTROPIN [Suspect]
     Active Substance: SOMATROPIN
     Indication: GROWTH HORMONE DEFICIENCY
     Dosage: 0.4 MG, DAILY
     Route: 058
     Dates: start: 201407, end: 2015
  7. UTROGEST [Concomitant]
     Active Substance: PROGESTERONE
  8. HYDROCORTISONE. [Concomitant]
     Active Substance: HYDROCORTISONE
     Indication: HYPOPITUITARISM
     Dosage: 15-10-0 (15 IN THE MORNING AND 10 IN THE AFTERNOON)

REACTIONS (2)
  - Disease progression [Unknown]
  - Craniopharyngioma [Unknown]

NARRATIVE: CASE EVENT DATE: 201502
